FAERS Safety Report 7002902-9 (Version None)
Quarter: 2010Q3

REPORT INFORMATION
  Report Type: 
  Country: None (occurrence: None)
  Receive Date: 20100920
  Receipt Date: 20070524
  Transmission Date: 20110219
  Serious: Yes (Other)
  Sender: FDA-Public Use
  Company Number: US-ASTRAZENECA-2006UW25531

PATIENT
  Age: 44 Year
  Sex: Male
  Weight: 117.9 kg

DRUGS (28)
  1. SEROQUEL [Suspect]
     Indication: DEPRESSION
     Dosage: 100 MG - 600 MG
     Route: 048
     Dates: start: 20040116
  2. SEROQUEL [Suspect]
     Dosage: 300MG TO 350MG
     Route: 048
  3. HALDOL [Suspect]
     Dates: start: 20050101
  4. HALDOL [Suspect]
     Dates: start: 20060213
  5. ABILIFY [Concomitant]
     Dates: start: 20060101
  6. RISPERDAL [Concomitant]
     Dosage: 2 MG AT NIGHT / IMG A.M
     Dates: start: 20031118
  7. BENZODIAZEPINE [Concomitant]
     Dates: start: 20061011
  8. ASPIRIN [Concomitant]
     Dates: start: 19980418
  9. GLYBURIDE [Concomitant]
     Dates: start: 20060106
  10. ENALAPRIL [Concomitant]
     Dates: start: 20060106
  11. CLONAZEPAM [Concomitant]
     Dates: start: 20060106
  12. EFFEXOR XR [Concomitant]
     Dosage: 75 MG - 225 MG
     Dates: start: 20031118
  13. METFORMIN HCL [Concomitant]
     Dosage: 500 MG, 1000 MG FLUCTUATING
     Dates: start: 20060106
  14. TRAZODONE HCL [Concomitant]
     Dates: start: 20060106
  15. LISINOPRIL [Concomitant]
     Dosage: 10 MG, 20 MG FLUCTUATING
     Dates: start: 20060123
  16. METOPROLOL [Concomitant]
     Dates: start: 20060123
  17. LANTUS [Concomitant]
     Dosage: 20 UNITS SUBCUTANEOUSLY
  18. WELLBUTRIN [Concomitant]
     Dates: start: 20070716
  19. CELEXA [Concomitant]
     Dates: start: 20070716
  20. NORVASC [Concomitant]
     Dates: start: 20070716
  21. POTASSIUM CHLORIDE [Concomitant]
     Dosage: 20 MEQ, TWO TIMES A DAY
     Dates: start: 20070716
  22. GLUCOVANCE [Concomitant]
     Dates: start: 20070716
  23. DIAZEPAM [Concomitant]
     Indication: ANXIETY
     Dates: start: 20070716
  24. ZIAC [Concomitant]
     Indication: HYPERTENSION
     Dates: start: 20070716
  25. LEXAPRO [Concomitant]
     Dates: start: 20060213
  26. DARVOCET-N 100 [Concomitant]
     Dosage: 100 MG ONE, TWO TIMES A DAY AS NEEDED
     Dates: start: 20060213
  27. ZOCOR [Concomitant]
     Dates: start: 20060106
  28. BENADRYL [Concomitant]
     Dosage: 50 MG, TWO TIMES A DAY AS NEEDED
     Dates: start: 20060213

REACTIONS (6)
  - DIABETES MELLITUS [None]
  - DIABETES MELLITUS INADEQUATE CONTROL [None]
  - HYPERGLYCAEMIA [None]
  - INSULIN-REQUIRING TYPE 2 DIABETES MELLITUS [None]
  - TYPE 1 DIABETES MELLITUS [None]
  - TYPE 2 DIABETES MELLITUS [None]
